FAERS Safety Report 9242656 (Version 2)
Quarter: 2013Q3

REPORT INFORMATION
  Report Type: Spontaneous
  Country: JP (occurrence: JP)
  Receive Date: 20130419
  Receipt Date: 20130708
  Transmission Date: 20140515
  Serious: Yes (Hospitalization)
  Sender: FDA-Public Use
  Company Number: JP-GLAXOSMITHKLINE-B0883257A

PATIENT
  Age: 84 Year
  Sex: Male

DRUGS (2)
  1. LAMICTAL [Suspect]
     Indication: EPILEPSY
     Dosage: 25MG PER DAY
     Route: 048
     Dates: start: 20130213, end: 20130322
  2. DEPAKENE-R [Concomitant]
     Route: 048
     Dates: start: 20000529, end: 20130322

REACTIONS (10)
  - Drug eruption [Recovered/Resolved]
  - Stevens-Johnson syndrome [Recovered/Resolved]
  - Pyrexia [Unknown]
  - Rash generalised [Unknown]
  - Erythema [Unknown]
  - Papule [Unknown]
  - Tongue discolouration [Unknown]
  - Lip erosion [Unknown]
  - Oral mucosa erosion [Unknown]
  - Rash maculo-papular [Unknown]
